FAERS Safety Report 13579707 (Version 1)
Quarter: 2017Q2

REPORT INFORMATION
  Report Type: Spontaneous
  Country: US (occurrence: US)
  Receive Date: 20170525
  Receipt Date: 20170525
  Transmission Date: 20170830
  Serious: Yes (Other)
  Sender: FDA-Public Use
  Company Number: US-CLINIGEN GROUP PLC/ CLINIGEN HEALTHCARE LTD-E2B_00004693

PATIENT
  Age: 28 Year
  Sex: Male

DRUGS (10)
  1. FOSCAVIR [Suspect]
     Active Substance: FOSCARNET SODIUM
     Indication: CYTOMEGALOVIRUS INFECTION
     Dosage: DOSE: 6750 MG TOTAL DAILY DOSE: 6750 MG
     Route: 042
     Dates: start: 19940726, end: 19940811
  2. FOSCAVIR [Suspect]
     Active Substance: FOSCARNET SODIUM
     Dosage: DOSE: 6750 MG TOTAL DAILY DOSE: 6750 MG
     Route: 042
     Dates: start: 19940811, end: 19940823
  3. CLOTRIMAZOLE. [Concomitant]
     Active Substance: CLOTRIMAZOLE
     Dosage: DOSE: 10 MG TOTAL DAILY DOSE: 20 MG
     Route: 048
  4. NAFCILLIN [Concomitant]
     Active Substance: NAFCILLIN\NAFCILLIN SODIUM
     Dosage: DOSE: 1000 MG
     Route: 042
  5. TRIMETHOPRIM-SULFA [Concomitant]
     Route: 065
  6. BACTRIM [Concomitant]
     Active Substance: SULFAMETHOXAZOLE\TRIMETHOPRIM
     Route: 065
  7. BACTROBAN [Concomitant]
     Active Substance: MUPIROCIN\MUPIROCIN CALCIUM
     Route: 061
  8. DICLOXACILLIN [Concomitant]
     Active Substance: DICLOXACILLIN
     Dosage: DOSE: 500 MG TOTAL DAILY DOSE: 2000 MG
     Route: 048
  9. FAMCICLOVIR. [Concomitant]
     Active Substance: FAMCICLOVIR
     Dosage: DOSE: 500 MG TOTAL DAILY DOSE: 1500 MG
     Route: 048
     Dates: start: 19940921
  10. FOSCAVIR [Suspect]
     Active Substance: FOSCARNET SODIUM
     Dosage: DOSE: 2100 MG TOTAL DAILY DOSE: 6300 MG
     Route: 042
     Dates: start: 19940913, end: 19940913

REACTIONS (2)
  - Renal impairment [Not Recovered/Not Resolved]
  - Blood creatinine increased [Not Recovered/Not Resolved]

NARRATIVE: CASE EVENT DATE: 19940811
